FAERS Safety Report 20633802 (Version 5)
Quarter: 2022Q4

REPORT INFORMATION
  Report Type: Report from Study
  Country: FR (occurrence: FR)
  Receive Date: 20220324
  Receipt Date: 20221117
  Transmission Date: 20230113
  Serious: Yes (Other)
  Sender: FDA-Public Use
  Company Number: FR-GILEAD-2022-0570153

PATIENT
  Age: 62 Year
  Sex: Female
  Weight: 85 kg

DRUGS (18)
  1. SACITUZUMAB GOVITECAN [Suspect]
     Active Substance: SACITUZUMAB GOVITECAN
     Indication: Triple negative breast cancer
     Dosage: 10 MG/KG D1, D8
     Route: 042
     Dates: start: 20211115, end: 202111
  2. SACITUZUMAB GOVITECAN [Suspect]
     Active Substance: SACITUZUMAB GOVITECAN
     Dosage: 10 MG/KG  D1/D2
     Route: 042
     Dates: start: 20211206, end: 20211214
  3. SACITUZUMAB GOVITECAN [Suspect]
     Active Substance: SACITUZUMAB GOVITECAN
     Dosage: 10 MG/KG D D2
     Route: 042
     Dates: start: 20211227, end: 20220103
  4. SACITUZUMAB GOVITECAN [Suspect]
     Active Substance: SACITUZUMAB GOVITECAN
     Dosage: 10 MG/KG D1 D2; C3
     Route: 042
     Dates: start: 20220117, end: 20220124
  5. SACITUZUMAB GOVITECAN [Suspect]
     Active Substance: SACITUZUMAB GOVITECAN
     Dosage: 10 MG/KG; C5; DAY 1 AND 8 OF EACH CYCLE
     Route: 042
     Dates: start: 20220207, end: 20220214
  6. SACITUZUMAB GOVITECAN [Suspect]
     Active Substance: SACITUZUMAB GOVITECAN
     Dosage: 10 MG/KG; C6; DAY 1 AND 8 OF EACH CYCLE
     Route: 042
     Dates: start: 20220228, end: 20220308
  7. DOCETAXEL [Concomitant]
     Active Substance: DOCETAXEL
  8. DOXORUBICIN [Concomitant]
     Active Substance: DOXORUBICIN
  9. CYCLOPHOSPHAMIDE [Concomitant]
     Active Substance: CYCLOPHOSPHAMIDE
  10. PACLITAXEL [Concomitant]
     Active Substance: PACLITAXEL
  11. BEVACIZUMAB [Concomitant]
     Active Substance: BEVACIZUMAB
  12. CARBOPLATIN [Concomitant]
     Active Substance: CARBOPLATIN
  13. TRAMADOL [Concomitant]
     Active Substance: TRAMADOL
     Indication: Pain
     Dosage: UNK
     Dates: start: 202112
  14. ERIBULIN [Concomitant]
     Active Substance: ERIBULIN
  15. CAPECITABINE [Concomitant]
     Active Substance: CAPECITABINE
  16. GEMCITABINE [Concomitant]
     Active Substance: GEMCITABINE
  17. METHOTREXATE [Concomitant]
     Active Substance: METHOTREXATE
  18. VINORELBINE [Concomitant]
     Active Substance: VINORELBINE TARTRATE

REACTIONS (5)
  - Vision blurred [Recovered/Resolved]
  - Pruritus [Recovered/Resolved]
  - Rash pruritic [Recovered/Resolved]
  - Neuropathy peripheral [Not Recovered/Not Resolved]
  - Inappropriate schedule of product administration [Recovered/Resolved]

NARRATIVE: CASE EVENT DATE: 20211119
